FAERS Safety Report 6818215-1 (Version None)
Quarter: 2010Q3

REPORT INFORMATION
  Report Type: 
  Country: None (occurrence: None)
  Receive Date: 20100706
  Receipt Date: 20070308
  Transmission Date: 20110219
  Serious: No
  Sender: FDA-Public Use
  Company Number: US-PFIZER INC-2007019424

PATIENT
  Sex: Male

DRUGS (3)
  1. ZITHROMAX [Suspect]
  2. CELEBREX [Concomitant]
  3. LIPITOR [Concomitant]

REACTIONS (2)
  - DRY MOUTH [None]
  - OROPHARYNGEAL PAIN [None]
